FAERS Safety Report 6465387-7 (Version None)
Quarter: 2009Q4

REPORT INFORMATION
  Report Type: 
  Country: None (occurrence: None)
  Receive Date: 20091201
  Receipt Date: 20090814
  Transmission Date: 20100525
  Serious: No
  Sender: FDA-Public Use
  Company Number: US-AMGEN-KDL295448

PATIENT
  Sex: Female

DRUGS (4)
  1. ENBREL [Suspect]
     Indication: PSORIATIC ARTHROPATHY
     Route: 058
     Dates: start: 20080520
  2. ENBREL [Suspect]
     Indication: PSORIASIS
  3. ESTRADIOL [Concomitant]
  4. UNSPECIFIED TOPICAL PRODUCT [Concomitant]

REACTIONS (1)
  - EYE INFECTION [None]
